FAERS Safety Report 5274534-4 (Version None)
Quarter: 2007Q1

REPORT INFORMATION
  Report Type: 
  Country: None (occurrence: None)
  Receive Date: 20070320
  Receipt Date: 20070306
  Transmission Date: 20070707
  Serious: Yes (Other)
  Sender: FDA-Public Use
  Company Number: GXKR2007JP02284

PATIENT
  Age: 37 Year
  Sex: Female

DRUGS (3)
  1. CYCLOSPORINE [Suspect]
     Indication: PROPHYLAXIS
     Dosage: SEE IMAGE
     Dates: start: 20030301
  2. CYCLOSPORINE [Suspect]
     Indication: PROPHYLAXIS
     Dosage: SEE IMAGE
     Dates: start: 20040301
  3. METHOTREXATE [Concomitant]

REACTIONS (7)
  - HYPOAESTHESIA [None]
  - INFECTION [None]
  - MUSCULOSKELETAL STIFFNESS [None]
  - MYELOPATHY [None]
  - PAIN IN EXTREMITY [None]
  - PARAESTHESIA [None]
  - SENSORY DISTURBANCE [None]
